FAERS Safety Report 8186929-X (Version None)
Quarter: 2012Q1

REPORT INFORMATION
  Report Type: 
  Country: None (occurrence: None)
  Receive Date: 20120306
  Receipt Date: 20120302
  Transmission Date: 20120608
  Serious: No
  Sender: FDA-Public Use
  Company Number: US-PFIZER INC-2011291412

PATIENT
  Sex: Female
  Weight: 65.76 kg

DRUGS (7)
  1. BENEFIBER [Concomitant]
  2. OXYCODONE [Concomitant]
     Dosage: 5 MG, UNK
  3. ESTROGEN [Concomitant]
  4. LYRICA [Suspect]
     Indication: BACK PAIN
     Dosage: 75 MG, 2X/DAY
     Route: 048
     Dates: start: 20110907
  5. LYRICA [Suspect]
     Indication: NEURALGIA
  6. AMBIEN [Concomitant]
     Dosage: UNK
  7. SYNTHROID [Concomitant]
     Indication: HYPOTHYROIDISM
     Dosage: UNK

REACTIONS (8)
  - DIARRHOEA [None]
  - PAIN [None]
  - ALOPECIA [None]
  - VISION BLURRED [None]
  - AMNESIA [None]
  - WEIGHT INCREASED [None]
  - OEDEMA PERIPHERAL [None]
  - DIZZINESS [None]
